FAERS Safety Report 24414783 (Version 1)
Quarter: 2024Q4

REPORT INFORMATION
  Report Type: Spontaneous
  Country: US (occurrence: US)
  Receive Date: 20241009
  Receipt Date: 20241009
  Transmission Date: 20250114
  Serious: Yes (Life-Threatening, Other)
  Sender: CHEPLAPHARM
  Company Number: US-CHEPLA-2024012604

PATIENT
  Age: 67 Year
  Sex: Female

DRUGS (3)
  1. HYDROXYUREA [Suspect]
     Active Substance: HYDROXYUREA
     Indication: Leukapheresis
  2. TRETINOIN [Suspect]
     Active Substance: TRETINOIN
     Indication: Haemorrhagic disorder
  3. DECADRON [Suspect]
     Active Substance: DEXAMETHASONE
     Indication: Differentiation syndrome

REACTIONS (5)
  - Respiratory distress [Unknown]
  - Condition aggravated [Unknown]
  - Acute kidney injury [Unknown]
  - Tumour lysis syndrome [Unknown]
  - Off label use [Unknown]
